FAERS Safety Report 11136705 (Version 1)
Quarter: 2015Q2

REPORT INFORMATION
  Report Type: Spontaneous
  Country: FR (occurrence: FR)
  Receive Date: 20150526
  Receipt Date: 20150526
  Transmission Date: 20150821
  Serious: Yes (Hospitalization)
  Sender: FDA-Public Use
  Company Number: FR-HOSPIRA-2874231

PATIENT
  Age: 54 Year
  Sex: Male

DRUGS (1)
  1. PACLITAXEL HOSPIRA [Suspect]
     Active Substance: PACLITAXEL
     Indication: PRODUCT USED FOR UNKNOWN INDICATION
     Dosage: C3S2
     Route: 041
     Dates: start: 20150105

REACTIONS (5)
  - Paraesthesia [Unknown]
  - Agranulocytosis [Recovered/Resolved]
  - Muscular weakness [Unknown]
  - Fall [Unknown]
  - Allodynia [Unknown]

NARRATIVE: CASE EVENT DATE: 20150111
